FAERS Safety Report 6160447-2 (Version None)
Quarter: 2009Q2

REPORT INFORMATION
  Report Type: 
  Country: None (occurrence: None)
  Receive Date: 20090420
  Receipt Date: 20090409
  Transmission Date: 20091009
  Serious: Yes (Hospitalization)
  Sender: FDA-Public Use
  Company Number: JP-ASTRAZENECA-2009AP02545

PATIENT
  Sex: Male

DRUGS (1)
  1. OMEPRAL [Suspect]
     Dosage: DOSE UNKNOWN
     Route: 048

REACTIONS (1)
  - LIVER DISORDER [None]
